FAERS Safety Report 9847385 (Version 2)
Quarter: 2014Q1

REPORT INFORMATION
  Report Type: Spontaneous
  Country: US (occurrence: US)
  Receive Date: 20140127
  Receipt Date: 20140311
  Transmission Date: 20141002
  Serious: Yes (Hospitalization, Other)
  Sender: FDA-Public Use
  Company Number: US-RB-062813-14

PATIENT
  Age: 0 None
  Sex: Male

DRUGS (7)
  1. SUBOXONE TABLET [Suspect]
     Indication: DRUG DEPENDENCE
     Route: 064
     Dates: start: 200908, end: 200908
  2. SUBUTEX [Suspect]
     Indication: DRUG DEPENDENCE
     Route: 064
     Dates: start: 200908, end: 201004
  3. PAXIL [Concomitant]
     Indication: BIPOLAR II DISORDER
     Route: 064
     Dates: start: 200908, end: 20100414
  4. PAXIL [Concomitant]
     Route: 063
     Dates: start: 20100414, end: 20100416
  5. MUSCLE RELAXER [Concomitant]
     Dosage: DOSING DETAILS UNKNOWN
     Route: 064
     Dates: start: 200908, end: 20100414
  6. MUSCLE RELAXER [Concomitant]
     Indication: LIMB DISCOMFORT
     Dosage: DOSING DETAILS UNKNOWN
     Route: 063
     Dates: start: 20100414, end: 20100416
  7. PRENATAL VITAMINS [Concomitant]
     Indication: PREGNANCY
     Dosage: DOSING DETAILS UNKNOWN
     Route: 064
     Dates: start: 200908, end: 201004

REACTIONS (5)
  - Foetal exposure during pregnancy [Recovered/Resolved]
  - Contusion [Recovered/Resolved]
  - Premature baby [Recovered/Resolved]
  - Drug withdrawal syndrome neonatal [Recovered/Resolved]
  - Jaundice neonatal [Recovered/Resolved]
